FAERS Safety Report 5715055-1 (Version None)
Quarter: 2008Q2

REPORT INFORMATION
  Report Type: 
  Country: None (occurrence: None)
  Receive Date: 20080423
  Receipt Date: 20080414
  Transmission Date: 20081010
  Serious: Yes (Hospitalization, Other)
  Sender: FDA-Public Use
  Company Number: US-ABBOTT-08P-163-0447363-00

PATIENT
  Age: 39 Year
  Sex: Male

DRUGS (12)
  1. WARFARIN SODIUM [Suspect]
     Indication: ATRIAL FIBRILLATION
  2. WARFARIN SODIUM [Suspect]
     Dosage: 5MG ALTERNATING 2.5MG DAILY
  3. WARFARIN SODIUM [Suspect]
     Dosage: 5MG 5 DAYS/WK 2.5MG 2 D/WK
  4. WARFARIN SODIUM [Suspect]
     Dosage: NOT REPORTED
  5. WARFARIN SODIUM [Suspect]
     Dosage: 5MG ALTERNATING 2.5MG DAILY
  6. METHIMAZOLE [Suspect]
     Indication: HYPERTHYROIDISM
  7. METHIMAZOLE [Suspect]
  8. METHIMAZOLE [Suspect]
     Dosage: NOT REPORTED
  9. SODIUM IODIDE I 131 [Suspect]
     Indication: BASEDOW'S DISEASE
     Dosage: 15 MCI
  10. PROPRANOLOL [Concomitant]
     Indication: DRUG USE FOR UNKNOWN INDICATION
  11. PROPRANOLOL [Concomitant]
  12. DIGOXIN [Concomitant]
     Indication: ATRIAL FIBRILLATION

REACTIONS (4)
  - DRUG TOXICITY [None]
  - GINGIVAL BLEEDING [None]
  - HYPERTHYROIDISM [None]
  - PROTHROMBIN LEVEL INCREASED [None]
